FAERS Safety Report 9714109 (Version 2)
Quarter: 2015Q3

REPORT INFORMATION
  Report Type: Spontaneous
  Country: US (occurrence: US)
  Receive Date: 20131126
  Receipt Date: 20150803
  Transmission Date: 20151125
  Serious: No
  Sender: FDA-Public Use
  Company Number: US-GILEAD-2008-0018871

PATIENT
  Age: 76 Year
  Sex: Female
  Weight: 67 kg

DRUGS (10)
  1. LIPITOR [Concomitant]
     Active Substance: ATORVASTATIN CALCIUM
  2. LETAIRIS [Suspect]
     Active Substance: AMBRISENTAN
     Indication: PULMONARY ARTERIAL HYPERTENSION
     Route: 048
     Dates: start: 20080208
  3. FUROSEMIDE. [Concomitant]
     Active Substance: FUROSEMIDE
  4. SPIRIVA [Concomitant]
     Active Substance: TIOTROPIUM BROMIDE MONOHYDRATE
  5. CALCIUM [Concomitant]
     Active Substance: CALCIUM
  6. LIBRAX [Concomitant]
     Active Substance: CHLORDIAZEPOXIDE HYDROCHLORIDE\CLIDINIUM BROMIDE
  7. MIACALCIN [Concomitant]
     Active Substance: CALCITONIN SALMON
  8. METHSCOPOLAM [Concomitant]
  9. CENTRUM [Concomitant]
     Active Substance: VITAMINS
  10. ASA LO-DOSE [Concomitant]

REACTIONS (1)
  - Haemoglobin decreased [Not Recovered/Not Resolved]

NARRATIVE: CASE EVENT DATE: 20081105
